FAERS Safety Report 13825458 (Version 2)
Quarter: 2017Q3

REPORT INFORMATION
  Report Type: Report from Study
  Country: IE (occurrence: IE)
  Receive Date: 20170802
  Receipt Date: 20170906
  Transmission Date: 20171127
  Serious: Yes (Other)
  Sender: FDA-Public Use
  Company Number: IE-JNJFOC-20170528999

PATIENT
  Age: 69 Year
  Sex: Female

DRUGS (24)
  1. DELTACORTRIL [Concomitant]
     Active Substance: PREDNISOLONE
     Route: 065
  2. PANTOLEX [Concomitant]
     Route: 065
  3. DEPUMP [Concomitant]
     Route: 065
  4. STELARA [Suspect]
     Active Substance: USTEKINUMAB
     Indication: POLYMYALGIA RHEUMATICA
     Route: 058
     Dates: start: 20170320
  5. STELARA [Suspect]
     Active Substance: USTEKINUMAB
     Indication: POLYMYALGIA RHEUMATICA
     Route: 058
     Dates: start: 201609
  6. AMITRIPTYLINE [Concomitant]
     Active Substance: AMITRIPTYLINE
     Route: 065
  7. NEURONTIN [Concomitant]
     Active Substance: GABAPENTIN
     Route: 065
  8. ELTROXIN [Concomitant]
     Active Substance: LEVOTHYROXINE
     Route: 065
  9. CLONAZEPAM. [Concomitant]
     Active Substance: CLONAZEPAM
     Dosage: AT  NIGHT
     Route: 065
  10. TRAMADOL. [Concomitant]
     Active Substance: TRAMADOL
     Route: 065
  11. STELARA [Suspect]
     Active Substance: USTEKINUMAB
     Indication: TEMPORAL ARTERITIS
     Route: 058
     Dates: start: 20170320
  12. PANTOPRAZOLE [Concomitant]
     Active Substance: PANTOPRAZOLE
     Route: 065
  13. NSA [Concomitant]
     Active Substance: UNSPECIFIED INGREDIENT
     Route: 065
  14. PARACETAMOL [Concomitant]
     Active Substance: ACETAMINOPHEN
     Route: 065
  15. DESUNIN [Concomitant]
     Active Substance: CHOLECALCIFEROL
     Route: 065
  16. STELARA [Suspect]
     Active Substance: USTEKINUMAB
     Indication: VASCULITIS
     Route: 058
     Dates: start: 20170320
  17. STELARA [Suspect]
     Active Substance: USTEKINUMAB
     Indication: VASCULITIS
     Route: 058
     Dates: start: 201609
  18. STELARA [Suspect]
     Active Substance: USTEKINUMAB
     Indication: TEMPORAL ARTERITIS
     Route: 058
     Dates: start: 201609
  19. TRAMADOL. [Concomitant]
     Active Substance: TRAMADOL
     Route: 065
  20. ASPIRIN. [Concomitant]
     Active Substance: ASPIRIN
     Route: 065
  21. RIVOTRIL [Concomitant]
     Active Substance: CLONAZEPAM
     Route: 065
  22. PROZAC [Concomitant]
     Active Substance: FLUOXETINE HYDROCHLORIDE
     Route: 065
  23. NOCTE [Concomitant]
     Route: 065
  24. ELTROXIN [Concomitant]
     Active Substance: LEVOTHYROXINE
     Route: 065

REACTIONS (9)
  - Fall [Recovered/Resolved]
  - Ear infection [Recovered/Resolved]
  - Pain [Unknown]
  - Eye infection [Recovered/Resolved]
  - Product use in unapproved indication [Unknown]
  - Off label use [Unknown]
  - Hordeolum [Recovering/Resolving]
  - Haematoma infection [Recovered/Resolved]
  - Limb injury [Recovered/Resolved]

NARRATIVE: CASE EVENT DATE: 201609
